FAERS Safety Report 17233506 (Version 1)
Quarter: 2020Q1

REPORT INFORMATION
  Report Type: Spontaneous
  Country: FR (occurrence: FR)
  Receive Date: 20200104
  Receipt Date: 20200104
  Transmission Date: 20200409
  Serious: Yes (Hospitalization, Other)
  Sender: FDA-Public Use
  Company Number: FR-AUROBINDO-AUR-APL-2020-000258

PATIENT
  Age: 95 Year
  Sex: Female
  Weight: 56 kg

DRUGS (9)
  1. MIANSERIN HYDROCHLORIDE [Concomitant]
     Active Substance: MIANSERIN HYDROCHLORIDE
     Indication: PRODUCT USED FOR UNKNOWN INDICATION
     Dosage: 30 MILLIGRAM, ONCE A DAY
     Route: 048
  2. SMECTALIA [Concomitant]
     Indication: PRODUCT USED FOR UNKNOWN INDICATION
     Dosage: 6 DOSAGE FORM, ONCE A DAY
     Route: 048
  3. PERINDOPRIL [Suspect]
     Active Substance: PERINDOPRIL
     Indication: HYPERTENSION
     Dosage: 2 MILLIGRAM, ONCE A DAY
     Route: 048
     Dates: end: 20180824
  4. FUROSEMIDE. [Suspect]
     Active Substance: FUROSEMIDE
     Indication: HYPERTENSION
     Dosage: 40 MILLIGRAM, ONCE A DAY
     Route: 048
     Dates: end: 20180824
  5. FOSFOMYCINE [Concomitant]
     Active Substance: FOSFOMYCIN
     Indication: PRODUCT USED FOR UNKNOWN INDICATION
     Dosage: 1 DOSAGE FORM, EVERY WEEK
     Route: 048
  6. LANTUS [Concomitant]
     Active Substance: INSULIN GLARGINE
     Indication: PRODUCT USED FOR UNKNOWN INDICATION
     Dosage: 8 INTERNATIONAL UNIT, ONCE A DAY
     Route: 058
  7. PANTOPRAZOLE [Concomitant]
     Active Substance: PANTOPRAZOLE
     Indication: PRODUCT USED FOR UNKNOWN INDICATION
     Dosage: 40 MILLIGRAM, ONCE A DAY
     Route: 048
  8. HUMALOG [Concomitant]
     Active Substance: INSULIN LISPRO
     Indication: PRODUCT USED FOR UNKNOWN INDICATION
     Dosage: 8 INTERNATIONAL UNIT, ONCE A DAY
     Route: 058
  9. METRONIDAZOLE. [Concomitant]
     Active Substance: METRONIDAZOLE
     Indication: PRODUCT USED FOR UNKNOWN INDICATION
     Dosage: 1000 MILLIGRAM, ONCE A DAY
     Route: 048

REACTIONS (1)
  - Acute kidney injury [Recovered/Resolved]

NARRATIVE: CASE EVENT DATE: 20180821
